FAERS Safety Report 6678201-1 (Version None)
Quarter: 2010Q2

REPORT INFORMATION
  Report Type: 
  Country: None (occurrence: None)
  Receive Date: 20100408
  Receipt Date: 20100408
  Transmission Date: 20101027
  Serious: Yes (Hospitalization)
  Sender: FDA-Public Use
  Company Number: None

PATIENT
  Sex: Male
  Weight: 15.6 kg

DRUGS (2)
  1. BUSPIRONE HYDROCHLORIDE [Suspect]
     Indication: AUTISM
     Dosage: 1ML, BID, PO
     Route: 048
     Dates: start: 20100128
  2. ALBUTEROL [Concomitant]

REACTIONS (4)
  - DECREASED APPETITE [None]
  - LETHARGY [None]
  - PNEUMONIA [None]
  - VOMITING [None]
